FAERS Safety Report 9000667 (Version 2)
Quarter: 2013Q1

REPORT INFORMATION
  Report Type: Spontaneous
  Country: FR (occurrence: None)
  Receive Date: 20121226
  Receipt Date: 20130201
  Transmission Date: 20140127
  Serious: Yes (Hospitalization, Other)
  Sender: FDA-Public Use
  Company Number: 2012MPI00501

PATIENT
  Age: 49 Year
  Sex: Male

DRUGS (10)
  1. BRENTUXIMAB VEDOTIN [Suspect]
     Indication: HODGKIN^S DISEASE
     Dosage: 1.8 MG/KG, Q21D, INTRAVENOUS
     Route: 042
     Dates: start: 20120910, end: 20121001
  2. PREDNISONE (PREDNISONE ACETATE) [Concomitant]
  3. DIAMOX (ACETAZOLAMIDE SOIUM) [Concomitant]
  4. LASILIX (FUROSEMIDE) [Concomitant]
  5. DIFFU K (POTASSIUM CHLORIDE) [Concomitant]
  6. ZELITREX (VALACICLOVIR HYDROCHLORIDE) [Concomitant]
  7. ORACILINE (PHENOXYMETHYLPENICILLIN) [Concomitant]
  8. POLARAMINE (CHLORPHENAMINE MALEATE) [Concomitant]
  9. PARACETAMOL (PARACETAMOL) [Concomitant]
  10. BACTRIM [Suspect]
     Indication: PRODUCT USED FOR UNKNOWN INDICATION

REACTIONS (7)
  - Vestibular ataxia [None]
  - Purpura [None]
  - Vestibular neuronitis [None]
  - Disease progression [None]
  - Hodgkin^s disease [None]
  - Cerebellar syndrome [None]
  - Drug reaction with eosinophilia and systemic symptoms [None]
